FAERS Safety Report 4277015-X (Version None)
Quarter: 2004Q1

REPORT INFORMATION
  Report Type: 
  Country: None (occurrence: None)
  Receive Date: 20040120
  Receipt Date: 20040120
  Transmission Date: 20041129
  Serious: No
  Sender: FDA-Public Use
  Company Number: None

PATIENT
  Age: 54 Year
  Sex: Female
  Weight: 86.1834 kg

DRUGS (1)
  1. TAXOTERE [Suspect]
     Indication: BREAST CANCER
     Dosage: 100MG/M2 EVERY 3 WEEKS
     Dates: start: 20031210, end: 20031231

REACTIONS (3)
  - ACTIVITIES OF DAILY LIVING IMPAIRED [None]
  - LACRIMATION INCREASED [None]
  - VISION BLURRED [None]
